FAERS Safety Report 5313070-3 (Version None)
Quarter: 2007Q2

REPORT INFORMATION
  Report Type: 
  Country: None (occurrence: None)
  Receive Date: 20070430
  Receipt Date: 20070418
  Transmission Date: 20071010
  Serious: Yes (Death, Hospitalization)
  Sender: FDA-Public Use
  Company Number: FR-PFIZER INC-2007026914

PATIENT
  Age: 77 Year
  Sex: Male

DRUGS (7)
  1. CHAMPIX [Suspect]
     Route: 048
     Dates: start: 20070305, end: 20070307
  2. SEROPRAM [Suspect]
     Dates: start: 20070305, end: 20070307
  3. TRIATEC [Concomitant]
  4. VASTEN [Concomitant]
  5. DIGOXIN [Concomitant]
  6. CARDENSIEL [Concomitant]
  7. KARDEGIC [Concomitant]

REACTIONS (4)
  - ANOXIA [None]
  - ISCHAEMIA [None]
  - MALAISE [None]
  - SYNCOPE VASOVAGAL [None]
